FAERS Safety Report 7683899-5 (Version None)
Quarter: 2011Q3

REPORT INFORMATION
  Report Type: 
  Country: None (occurrence: None)
  Receive Date: 20110815
  Receipt Date: 20110809
  Transmission Date: 20111222
  Serious: Yes (Other)
  Sender: FDA-Public Use
  Company Number: US-PFIZER INC-2011150002

PATIENT
  Sex: Male

DRUGS (2)
  1. DILANTIN [Suspect]
     Indication: CONVULSION
     Dosage: 300 MG, 2X/DAY
  2. DILANTIN [Suspect]
     Dosage: 600 MG, 2X/DAY

REACTIONS (3)
  - ROAD TRAFFIC ACCIDENT [None]
  - CONVULSION [None]
  - SOMNOLENCE [None]
